FAERS Safety Report 15226570 (Version 1)
Quarter: 2018Q3

REPORT INFORMATION
  Report Type: Spontaneous
  Country: US (occurrence: US)
  Receive Date: 20180706
  Receipt Date: 20180706
  Transmission Date: 20181010
  Serious: Yes (Hospitalization)
  Sender: FDA-Public Use
  Company Number: None

PATIENT
  Age: 28 Year
  Sex: Male
  Weight: 77 kg

DRUGS (2)
  1. ONDANSETRON [Suspect]
     Active Substance: ONDANSETRON
     Indication: PROPHYLAXIS OF NAUSEA AND VOMITING
     Route: 040
     Dates: start: 20180629, end: 20180629
  2. DEXAMETHASONE 4MG [Concomitant]
     Active Substance: DEXAMETHASONE
     Dates: start: 20180629, end: 20180629

REACTIONS (3)
  - Dyskinesia [None]
  - Seizure [None]
  - Caesarean section [None]

NARRATIVE: CASE EVENT DATE: 20180629
